FAERS Safety Report 8587185-0 (Version None)
Quarter: 2012Q3

REPORT INFORMATION
  Report Type: 
  Country: None (occurrence: None)
  Receive Date: 20120810
  Receipt Date: 20110419
  Transmission Date: 20120928
  Serious: No
  Sender: FDA-Public Use
  Company Number: US-ASTRAZENECA-2010SE36537

PATIENT
  Age: 70 Year
  Sex: Female

DRUGS (2)
  1. FEMARA [Concomitant]
  2. ARIMIDEX [Suspect]
     Indication: BREAST CANCER
     Route: 048

REACTIONS (5)
  - FEELING ABNORMAL [None]
  - ARTHRALGIA [None]
  - LIMB DISCOMFORT [None]
  - ALOPECIA [None]
  - HOT FLUSH [None]
